FAERS Safety Report 18378958 (Version 1)
Quarter: 2020Q4

REPORT INFORMATION
  Report Type: Spontaneous
  Country: US (occurrence: US)
  Receive Date: 20201013
  Receipt Date: 20201013
  Transmission Date: 20210114
  Serious: Yes (Life-Threatening, Hospitalization)
  Sender: FDA-Public Use
  Company Number: US-MYLANLABS-2020M1086426

PATIENT
  Age: 22 Year
  Sex: Male

DRUGS (7)
  1. EPINEPHRINE. [Suspect]
     Active Substance: EPINEPHRINE
     Indication: PRODUCT USED FOR UNKNOWN INDICATION
     Dosage: 1 MILLIGRAM
     Route: 065
  2. MIDAZOLAM. [Concomitant]
     Active Substance: MIDAZOLAM
     Indication: PREMEDICATION
     Dosage: 2 MILLIGRAM
     Route: 065
  3. LIDOCAINE. [Suspect]
     Active Substance: LIDOCAINE
     Indication: GENERAL ANAESTHESIA
     Dosage: AS GENERAL ANAETHESIA
     Route: 065
  4. LIDOCAINE. [Suspect]
     Active Substance: LIDOCAINE
     Indication: TACHYCARDIA
     Dosage: BOLUS
  5. PROPOFOL. [Suspect]
     Active Substance: PROPOFOL
     Indication: GENERAL ANAESTHESIA
     Dosage: 150 MILLIGRAM
     Route: 065
  6. GLYCOPYRROLATE                     /00196201/ [Suspect]
     Active Substance: GLYCOPYRRONIUM
     Indication: BRADYCARDIA
     Dosage: 1 MILLIGRAM
     Route: 065
  7. FENTANYL. [Suspect]
     Active Substance: FENTANYL
     Indication: GENERAL ANAESTHESIA
     Dosage: 25 MICROGRAM
     Route: 065

REACTIONS (8)
  - Electrolyte imbalance [Recovered/Resolved]
  - Metabolic acidosis [Recovered/Resolved]
  - Blood glucose increased [Recovered/Resolved]
  - Cardiac arrest [Recovered/Resolved]
  - Electrocardiogram abnormal [Recovered/Resolved]
  - Therapy non-responder [Unknown]
  - Sinus tachycardia [Recovered/Resolved]
  - Hypotension [Recovered/Resolved]
